FAERS Safety Report 18100267 (Version 3)
Quarter: 2020Q3

REPORT INFORMATION
  Report Type: Spontaneous
  Country: GB (occurrence: GB)
  Receive Date: 20200731
  Receipt Date: 20200928
  Transmission Date: 20201103
  Serious: Yes (Hospitalization, Other)
  Sender: FDA-Public Use
  Company Number: NVSC2020GB211223

PATIENT
  Age: 63 Year
  Sex: Female

DRUGS (2)
  1. SOMATULINE [Suspect]
     Active Substance: LANREOTIDE ACETATE
     Indication: NEUROENDOCRINE TUMOUR
     Dosage: 120 MG, Q4W (120 MG/0.5 ML)
     Route: 058
  2. EVEROLIMUS. [Suspect]
     Active Substance: EVEROLIMUS
     Indication: PRODUCT USED FOR UNKNOWN INDICATION
     Dosage: 10 DAYS AGO
     Route: 065

REACTIONS (17)
  - Myalgia [Unknown]
  - Fatigue [Recovering/Resolving]
  - Lethargy [Unknown]
  - Myalgia [Not Recovered/Not Resolved]
  - Pruritus [Unknown]
  - Weight decreased [Recovering/Resolving]
  - Anxiety [Unknown]
  - Pain [Recovered/Resolved]
  - Inappropriate schedule of product administration [Unknown]
  - Malaise [Recovering/Resolving]
  - Gastrointestinal infection [Unknown]
  - Oral pain [Unknown]
  - Procedural pain [Recovering/Resolving]
  - Product dose omission issue [Unknown]
  - Appendicitis [Not Recovered/Not Resolved]
  - Abdominal pain [Recovering/Resolving]
  - Diarrhoea [Recovered/Resolved]
